FAERS Safety Report 5975350-8 (Version None)
Quarter: 2008Q4

REPORT INFORMATION
  Report Type: 
  Country: None (occurrence: None)
  Receive Date: 20081202
  Receipt Date: 20081124
  Transmission Date: 20090506
  Serious: Yes (Life-Threatening, Other)
  Sender: FDA-Public Use
  Company Number: NL-ABBOTT-08P-114-0489478-00

PATIENT
  Age: 15 Year
  Sex: Male

DRUGS (2)
  1. SEVOFLURANE [Suspect]
     Indication: ANAESTHESIA
     Route: 055
  2. OXYGEN [Concomitant]
     Indication: ANAESTHESIA
     Route: 055

REACTIONS (2)
  - CARDIAC ARREST [None]
  - TORSADE DE POINTES [None]
